FAERS Safety Report 6440460-8 (Version None)
Quarter: 2009Q4

REPORT INFORMATION
  Report Type: 
  Country: None (occurrence: None)
  Receive Date: 20091113
  Receipt Date: 20091103
  Transmission Date: 20100525
  Serious: Yes (Hospitalization)
  Sender: FDA-Public Use
  Company Number: US-PFIZER INC-2009295868

PATIENT
  Sex: Male
  Weight: 93 kg

DRUGS (4)
  1. CELEBREX [Suspect]
     Indication: ARTHRITIS
     Dosage: 200 MG, 2X/DAY
     Route: 048
     Dates: start: 20010101
  2. LISINOPRIL [Suspect]
     Dosage: 5 MG, 1X/DAY
  3. NORVASC [Concomitant]
     Dosage: UNK
     Dates: start: 19980101
  4. NEURONTIN [Concomitant]
     Dosage: UNK MG, 2X/DAY
     Dates: start: 20010101

REACTIONS (3)
  - DEHYDRATION [None]
  - HYPERKALAEMIA [None]
  - RENAL FAILURE ACUTE [None]
